FAERS Safety Report 10466101 (Version 3)
Quarter: 2015Q2

REPORT INFORMATION
  Report Type: Report from Study
  Country: DE (occurrence: DE)
  Receive Date: 20140922
  Receipt Date: 20150626
  Transmission Date: 20150821
  Serious: Yes (Hospitalization, Other)
  Sender: FDA-Public Use
  Company Number: DE-UCBSA-2014011711

PATIENT
  Sex: Female

DRUGS (17)
  1. METFORMINE [Concomitant]
     Active Substance: METFORMIN HYDROCHLORIDE
     Dosage: 1000, 1-0-1 ONCE DAILY (QD)
  2. BYETTA [Concomitant]
     Active Substance: EXENATIDE
     Dosage: 10-0-10 2X/DAY (BID)
  3. CERTOLIZUMAB PEGOL RA [Suspect]
     Active Substance: CERTOLIZUMAB PEGOL
     Dosage: STRENGTH: 200 MG
     Dates: start: 201304, end: 201402
  4. FLUOXETINE [Concomitant]
     Active Substance: FLUOXETINE\FLUOXETINE HYDROCHLORIDE
     Dosage: 20MG, 2-0-0 ONCE DAILY (QD)
  5. MORPHINE [Concomitant]
     Active Substance: MORPHINE
     Indication: PAIN
     Dosage: UNK
  6. CERTOLIZUMAB PEGOL RA [Suspect]
     Active Substance: CERTOLIZUMAB PEGOL
     Indication: RHEUMATOID ARTHRITIS
     Dosage: STRENGTH: 400 MG/ 200 MG STRENGTH SINCE 2010
     Dates: start: 200912, end: 201303
  7. METHOTREXATE [Suspect]
     Active Substance: METHOTREXATE
     Dosage: 15 MG, WEEKLY (QW)
     Dates: start: 200906
  8. LASIX [Concomitant]
     Active Substance: FUROSEMIDE
     Dosage: 40MG 1/2-0-0
  9. METFORMINE [Concomitant]
     Active Substance: METFORMIN HYDROCHLORIDE
     Dosage: 500MG, 1-0-1  2X/DAY (BID)
  10. TILIDINE [Concomitant]
     Active Substance: TILIDINE
     Indication: PAIN
  11. PANTOZOLE [Concomitant]
     Active Substance: PANTOPRAZOLE SODIUM
     Dosage: 40MG 1-0-0
  12. PREDNISOLONE. [Concomitant]
     Active Substance: PREDNISOLONE
     Dosage: 10MG, 1-0-1  2X/DAY (BID)
  13. FLUOXETINE [Concomitant]
     Active Substance: FLUOXETINE\FLUOXETINE HYDROCHLORIDE
     Dosage: 40,  1-0-0 ONCE DAILY (QD)
  14. NOVALGIN [Concomitant]
     Active Substance: METAMIZOLE SODIUM
     Indication: PAIN
  15. PANTOZOLE [Concomitant]
     Active Substance: PANTOPRAZOLE SODIUM
     Dosage: 40 1-0-1 2X/DAY (BID)
  16. SALBUTAMOL [Concomitant]
     Active Substance: ALBUTEROL
     Dosage: 3X2 PUFFS/DAY
  17. DICLO [Concomitant]
     Active Substance: DICLOFENAC SODIUM
     Indication: PAIN
     Dosage: UNK

REACTIONS (5)
  - Diabetes mellitus [Unknown]
  - Acute kidney injury [Recovered/Resolved]
  - Hypoxia [Unknown]
  - Systemic inflammatory response syndrome [Recovered/Resolved]
  - Pneumonia [Recovered/Resolved]

NARRATIVE: CASE EVENT DATE: 2014
